FAERS Safety Report 24339416 (Version 1)
Quarter: 2024Q3

REPORT INFORMATION
  Report Type: Spontaneous
  Country: US (occurrence: None)
  Receive Date: 20240918
  Receipt Date: 20240918
  Transmission Date: 20241017
  Serious: Yes (Other)
  Sender: Public
  Company Number: None

PATIENT
  Age: 50 Year
  Sex: Male
  Weight: 112.5 kg

DRUGS (11)
  1. PAXLOVID [Suspect]
     Active Substance: NIRMATRELVIR\RITONAVIR
     Indication: COVID-19
     Dosage: OTHER QUANTITY : 30 TABLET(S);?FREQUENCY : TWICE A DAY;?
     Route: 048
     Dates: start: 20240917, end: 20240918
  2. METFORMIN [Concomitant]
     Active Substance: METFORMIN HYDROCHLORIDE
  3. LISINOPRIL [Concomitant]
     Active Substance: LISINOPRIL
  4. GABAPENTIN [Concomitant]
     Active Substance: GABAPENTIN
  5. BUSPIRONE [Concomitant]
     Active Substance: BUSPIRONE HYDROCHLORIDE
  6. GLYXAMBI [Concomitant]
     Active Substance: EMPAGLIFLOZIN\LINAGLIPTIN
  7. ATORVASTATIN [Concomitant]
     Active Substance: ATORVASTATIN
  8. TADALAFIL [Concomitant]
     Active Substance: TADALAFIL
  9. One-a-day Vitamin for men over 50 [Concomitant]
  10. ALLEGRA [Concomitant]
     Active Substance: FEXOFENADINE HYDROCHLORIDE
  11. probiotic capsule [Concomitant]

REACTIONS (5)
  - Nausea [None]
  - Dizziness [None]
  - Hyperhidrosis [None]
  - Chills [None]
  - Vomiting [None]

NARRATIVE: CASE EVENT DATE: 20240918
